FAERS Safety Report 9173426 (Version 1)
Quarter: 2013Q1

REPORT INFORMATION
  Report Type: Spontaneous
  Country: GB (occurrence: None)
  Receive Date: 20130315
  Receipt Date: 20130315
  Transmission Date: 20140127
  Serious: Yes (Disabling)
  Sender: FDA-Public Use
  Company Number: 2013-03757

PATIENT
  Age: 59 Year
  Sex: Female
  Weight: 76 kg

DRUGS (13)
  1. LOSARTAN POTASSIUM [Suspect]
  2. TRAMADOL (TRAMADOL) [Concomitant]
  3. OMEPRAZOLE (OMEPRAZOLE) [Concomitant]
  4. AMITRIPTYLINE HYDROCHLORIDE (AMITRIPTYLINE HYDROCHLORIDE) [Concomitant]
  5. IBUPROFEN (IBUPROFEN) [Concomitant]
  6. SIMVASTATIN (SIMVASTATIN) [Concomitant]
  7. RAMIPRIL (RAMIPRIL) [Concomitant]
  8. TEMAZEPAM (TEMAZEPAM) [Concomitant]
  9. TICAGRELOR (TICAGRELOR) [Concomitant]
  10. ASPIRIN (ACETYLSALICYLIC ACID) [Concomitant]
  11. BISOPROLOL (BISOPROLOL) [Concomitant]
  12. PARACETAMOL (PARACETAMOL) [Concomitant]
  13. GLYCERYL TRINITRATE (GLYCERYL TRINITRATE) [Concomitant]

REACTIONS (2)
  - Sneezing [None]
  - Cough [None]
